FAERS Safety Report 20231714 (Version 1)
Quarter: 2021Q4

REPORT INFORMATION
  Report Type: Spontaneous
  Country: US (occurrence: US)
  Receive Date: 20211227
  Receipt Date: 20211227
  Transmission Date: 20220303
  Serious: No
  Sender: FDA-Public Use
  Company Number: US-AVEO ONCOLOGY-2021-AVEO-US003676

PATIENT

DRUGS (28)
  1. FOTIVDA [Suspect]
     Active Substance: TIVOZANIB HYDROCHLORIDE
     Indication: Renal cell carcinoma
     Dosage: 1.34 MG, DAILY FOR 21 DAYS ON THEN 7 DAYS OFF
     Dates: start: 20210728
  2. TYLENOL [Concomitant]
     Active Substance: ACETAMINOPHEN
  3. BENZONATATE [Concomitant]
     Active Substance: BENZONATATE
  4. ELIQUIS [Concomitant]
     Active Substance: APIXABAN
  5. GABAPENTIN [Concomitant]
     Active Substance: GABAPENTIN
  6. NORCO [Concomitant]
     Active Substance: ACETAMINOPHEN\HYDROCODONE BITARTRATE
  7. HYDROCORTISONE [Concomitant]
     Active Substance: HYDROCORTISONE
     Route: 048
  8. KLONOPIN [Concomitant]
     Active Substance: CLONAZEPAM
  9. LEVOTHYROXINE SODIUM [Concomitant]
     Active Substance: LEVOTHYROXINE SODIUM
  10. LOSARTAN [Concomitant]
     Active Substance: LOSARTAN
  11. SINGULAIR [Concomitant]
     Active Substance: MONTELUKAST SODIUM
  12. PRILOSEC [Concomitant]
     Active Substance: OMEPRAZOLE MAGNESIUM
  13. SIMETHICONE (DIMETHICONE) [Concomitant]
     Active Substance: DIMETHICONE
  14. SIMVASTATIN [Concomitant]
     Active Substance: SIMVASTATIN
  15. ARNICA MONTANA FLOWER [Concomitant]
     Active Substance: ARNICA MONTANA FLOWER
  16. NORVASC [Concomitant]
     Active Substance: AMLODIPINE BESYLATE
  17. COREG [Concomitant]
     Active Substance: CARVEDILOL
  18. AUGMENTIN [Concomitant]
     Active Substance: AMOXICILLIN\CLAVULANATE POTASSIUM
  19. CRANBERRY [Concomitant]
     Active Substance: CRANBERRY
  20. VITAMIN C [Concomitant]
     Active Substance: ASCORBIC ACID
  21. CREATINE [Concomitant]
     Active Substance: CREATINE
  22. MELATONIN [Concomitant]
     Active Substance: MELATONIN
  23. CANNABIDIOL\HERBALS [Concomitant]
     Active Substance: CANNABIDIOL\HERBALS
  24. AMLODIPINE [Concomitant]
     Active Substance: AMLODIPINE BESYLATE
  25. DULCOLAX NOS [Concomitant]
     Active Substance: BISACODYL OR DOCUSATE SODIUM
  26. PROBIOTICS NOS [Concomitant]
     Active Substance: PROBIOTICS NOS
  27. MIRALAX [Concomitant]
     Active Substance: POLYETHYLENE GLYCOL 3350
  28. SODIUM CHLORIDE [Concomitant]
     Active Substance: SODIUM CHLORIDE

REACTIONS (13)
  - Nausea [Unknown]
  - Cough [Unknown]
  - Fatigue [Unknown]
  - Constipation [Unknown]
  - Limb injury [Unknown]
  - Traumatic haematoma [Unknown]
  - Gastrooesophageal reflux disease [Unknown]
  - Dysphagia [Unknown]
  - Haemoptysis [Unknown]
  - Increased viscosity of bronchial secretion [Unknown]
  - Epistaxis [Unknown]
  - Pain [Unknown]
  - Aphonia [Unknown]
